FAERS Safety Report 5018891-2 (Version None)
Quarter: 2006Q2

REPORT INFORMATION
  Report Type: 
  Country: None (occurrence: None)
  Receive Date: 20060531
  Receipt Date: 20060509
  Transmission Date: 20061013
  Serious: Yes (Hospitalization, Other)
  Sender: FDA-Public Use
  Company Number: 2006064121

PATIENT
  Age: 34 Year
  Sex: Female
  Weight: 64.4108 kg

DRUGS (1)
  1. BEXTRA [Suspect]
     Indication: ABDOMINAL PAIN
     Dosage: 20 MG TWICE (DAILY), ORAL
     Route: 048
     Dates: start: 20010101, end: 20030101

REACTIONS (10)
  - CHEST PAIN [None]
  - COUGH [None]
  - DIZZINESS [None]
  - GALLBLADDER DISORDER [None]
  - HAEMORRHAGE [None]
  - HEADACHE [None]
  - HYSTERECTOMY [None]
  - SCAR [None]
  - SKIN IRRITATION [None]
  - SKIN LESION [None]
